FAERS Safety Report 9010878 (Version 5)
Quarter: 2013Q1

REPORT INFORMATION
  Report Type: Report from Study
  Country: US (occurrence: US)
  Receive Date: 20130109
  Receipt Date: 20130214
  Transmission Date: 20140127
  Serious: Yes (Other)
  Sender: FDA-Public Use
  Company Number: US-JNJFOC-20130103983

PATIENT
  Age: 18 Year
  Sex: Female
  Weight: 42.8 kg

DRUGS (12)
  1. REMICADE [Suspect]
     Indication: INFLAMMATORY BOWEL DISEASE
     Route: 042
     Dates: start: 20061128
  2. 5-ASA [Concomitant]
  3. LEXAPRO [Concomitant]
  4. VITAMIN D [Concomitant]
  5. FOLIC ACID [Concomitant]
  6. ZOFRAN [Concomitant]
  7. AMOXICILLIN [Concomitant]
  8. MULTIVIT [Concomitant]
  9. IRON [Concomitant]
  10. TRAZADOL [Concomitant]
  11. METHOTREXATE [Concomitant]
  12. CELEBREX [Concomitant]

REACTIONS (1)
  - Infectious mononucleosis [Recovered/Resolved]
